FAERS Safety Report 16278021 (Version 4)
Quarter: 2021Q1

REPORT INFORMATION
  Report Type: Spontaneous
  Country: JP (occurrence: JP)
  Receive Date: 20190506
  Receipt Date: 20210309
  Transmission Date: 20210419
  Serious: Yes (Other)
  Sender: FDA-Public Use
  Company Number: JP-PFIZER INC-2019181747

PATIENT
  Age: 75 Year
  Sex: Female
  Weight: 54.7 kg

DRUGS (10)
  1. LORBRENA [Suspect]
     Active Substance: LORLATINIB
     Indication: LUNG ADENOCARCINOMA
     Dosage: 75 MG, 1X/DAY AFTER BREAKFAST
     Route: 048
     Dates: start: 20190509, end: 20190626
  2. LORBRENA [Suspect]
     Active Substance: LORLATINIB
     Indication: LUNG ADENOCARCINOMA
     Dosage: 100 MG, 1X/DAY
     Route: 048
     Dates: start: 20181211, end: 20190417
  3. GLYCYRON [DL?METHIONINE;GLYCINE;GLYCYRRHIZIC ACID, AMMONIUM SALT] [Concomitant]
     Active Substance: AMMONIUM GLYCYRRHIZATE\GLYCINE\RACEMETHIONINE
     Dosage: 1 DF, 3X/DAY
     Dates: start: 20170706
  4. NEXIUM [Concomitant]
     Active Substance: ESOMEPRAZOLE MAGNESIUM
     Dosage: 20 MG, 1X/DAY
     Dates: start: 20170118
  5. HEPARINOID [Concomitant]
     Active Substance: CHONDROITIN SULFATE (BOVINE)
     Dosage: UNK
     Route: 061
     Dates: start: 20140521
  6. LASIX [Concomitant]
     Active Substance: FUROSEMIDE
     Dosage: 40 MG, 1X/DAY
     Dates: start: 20170208
  7. MIYA?BM [Concomitant]
     Active Substance: CLOSTRIDIUM BUTYRICUM SPORES STRAIN M-55
     Dosage: 1 G, 3X/DAY
     Dates: start: 20170118
  8. ROSUVASTATIN CALCIUM. [Concomitant]
     Active Substance: ROSUVASTATIN CALCIUM
     Dosage: 7.5 MG, 1X/DAY
     Dates: start: 20181211, end: 20201102
  9. URSODEOXYCHOLIC ACID [Concomitant]
     Active Substance: URSODIOL
     Dosage: 50 MG, 3X/DAY
     Dates: start: 20170517
  10. LORBRENA [Suspect]
     Active Substance: LORLATINIB
     Dosage: 50 MG, 1X/DAY AFTER BREAKFAST
     Route: 048
     Dates: start: 20190704, end: 20200717

REACTIONS (9)
  - Sclerema [Unknown]
  - Blood cholesterol increased [Unknown]
  - Dysaesthesia [Recovered/Resolved]
  - Dementia [Recovered/Resolved]
  - Cognitive disorder [Recovered/Resolved]
  - Peripheral swelling [Unknown]
  - Hypertriglyceridaemia [Unknown]
  - Panniculitis [Unknown]
  - Skin discolouration [Unknown]

NARRATIVE: CASE EVENT DATE: 20181217
